FAERS Safety Report 20525348 (Version 1)
Quarter: 2022Q1

REPORT INFORMATION
  Report Type: Spontaneous
  Country: JP (occurrence: JP)
  Receive Date: 20220228
  Receipt Date: 20220228
  Transmission Date: 20220424
  Serious: Yes (Other)
  Sender: FDA-Public Use
  Company Number: JP-GSKNCCC-Case-01430297_AE-55196

PATIENT
  Age: 47 Year
  Sex: Female

DRUGS (1)
  1. FLUTICASONE FUROATE\VILANTEROL TRIFENATATE [Suspect]
     Active Substance: FLUTICASONE FUROATE\VILANTEROL TRIFENATATE
     Dosage: 200 ?G
     Dates: start: 2015

REACTIONS (7)
  - Breast haemorrhage [Unknown]
  - Breast cancer [Unknown]
  - Breast neoplasm [Unknown]
  - Pruritus [Unknown]
  - Breast pain [Unknown]
  - Rash [Unknown]
  - Hypersensitivity [Unknown]

NARRATIVE: CASE EVENT DATE: 20180101
